FAERS Safety Report 10056085 (Version 1)
Quarter: 2014Q2

REPORT INFORMATION
  Report Type: Spontaneous
  Country: US (occurrence: None)
  Receive Date: 20140402
  Receipt Date: 20140402
  Transmission Date: 20141212
  Serious: Yes (Hospitalization)
  Sender: FDA-Public Use
  Company Number: None

PATIENT
  Age: 79 Year
  Sex: Male
  Weight: 92.9 kg

DRUGS (2)
  1. WARFARIN [Suspect]
     Indication: ATRIAL FIBRILLATION
     Route: 048
     Dates: start: 20131123, end: 20131203
  2. WARFARIN [Suspect]
     Indication: EJECTION FRACTION DECREASED
     Route: 048
     Dates: start: 20131123, end: 20131203

REACTIONS (1)
  - Haematochezia [None]
